FAERS Safety Report 5632817-X (Version None)
Quarter: 2008Q1

REPORT INFORMATION
  Report Type: 
  Country: None (occurrence: None)
  Receive Date: 20080221
  Receipt Date: 20070227
  Transmission Date: 20080703
  Serious: No
  Sender: FDA-Public Use
  Company Number: A0641224A

PATIENT
  Age: 77 Year
  Sex: Female

DRUGS (6)
  1. MELPHALAN [Suspect]
     Dates: start: 20070104
  2. THALIDOMIDE [Suspect]
     Dosage: 100MG AT NIGHT
     Route: 048
     Dates: start: 20070104
  3. PREDNISONE TAB [Concomitant]
     Dates: start: 20070114
  4. COUMADIN [Concomitant]
     Indication: THROMBOSIS PROPHYLAXIS
  5. SYNTHROID [Concomitant]
     Indication: HYPOTHYROIDISM
  6. TOPROL [Concomitant]
     Indication: ATRIAL FIBRILLATION

REACTIONS (4)
  - DIARRHOEA [None]
  - DIZZINESS [None]
  - EPISTAXIS [None]
  - HYPOAESTHESIA [None]
